FAERS Safety Report 13949103 (Version 2)
Quarter: 2017Q4

REPORT INFORMATION
  Report Type: Spontaneous
  Country: IT (occurrence: IT)
  Receive Date: 20170908
  Receipt Date: 20171009
  Transmission Date: 20180320
  Serious: Yes (Hospitalization)
  Sender: FDA-Public Use
  Company Number: IT-PFIZER INC-2017385746

PATIENT
  Age: 80 Year
  Sex: Male

DRUGS (7)
  1. BISOPROLOL [Interacting]
     Active Substance: BISOPROLOL
     Indication: HYPERTENSION
     Dosage: 1.25 MG, DAILY
     Route: 048
     Dates: start: 20170101, end: 20170830
  2. FUROSEMIDE. [Concomitant]
     Active Substance: FUROSEMIDE
     Dosage: 25 MG, UNK
  3. CLEXANE [Concomitant]
     Active Substance: ENOXAPARIN SODIUM
     Dosage: UNK
     Dates: end: 201707
  4. CARDURA [Suspect]
     Active Substance: DOXAZOSIN MESYLATE
     Indication: HYPERTENSION
     Dosage: 3 DF, DAILY
     Route: 048
     Dates: start: 20170101, end: 20170830
  5. MICARDIS [Interacting]
     Active Substance: TELMISARTAN
     Indication: HYPERTENSION
     Dosage: 1 DF, DAILY
     Route: 048
     Dates: start: 20170101, end: 20170830
  6. ALLOPURINOL. [Concomitant]
     Active Substance: ALLOPURINOL
  7. FISIOTENS [Interacting]
     Active Substance: MOXONIDINE
     Indication: HYPERTENSION
     Dosage: 2 DF, DAILY
     Route: 048
     Dates: start: 20170101, end: 20170830

REACTIONS (5)
  - Gravitational oedema [Unknown]
  - Drug interaction [Unknown]
  - Bradycardia [Unknown]
  - Pleural effusion [Unknown]
  - Cardiac failure [Unknown]

NARRATIVE: CASE EVENT DATE: 20170830
